FAERS Safety Report 8529853-2 (Version None)
Quarter: 2012Q3

REPORT INFORMATION
  Report Type: 
  Country: None (occurrence: None)
  Receive Date: 20120723
  Receipt Date: 20120712
  Transmission Date: 20120928
  Serious: Yes (Other)
  Sender: FDA-Public Use
  Company Number: JP-ASTELLAS-2011JP001164

PATIENT
  Age: 38 Year
  Sex: Female
  Weight: 40.3 kg

DRUGS (20)
  1. TACROLIMUS [Suspect]
     Indication: LUPUS NEPHRITIS
     Dosage: 2 MG, UNKNOWN/D
     Route: 048
     Dates: start: 20081126
  2. PREDNISOLONE [Concomitant]
     Dosage: 30 MG, UNKNOWN/D
     Route: 048
     Dates: start: 20080821, end: 20080919
  3. FERROUS CITRATE [Concomitant]
     Indication: IRON DEFICIENCY ANAEMIA
     Dosage: 100 MG, UNKNOWN/D
     Route: 048
  4. ABILIFY [Concomitant]
     Route: 048
  5. PREDNISOLONE [Concomitant]
     Dosage: 30 MG, UNKNOWN/D
     Route: 048
     Dates: start: 20080724, end: 20080820
  6. HEAVY MAGNESIUM OXIDE [Concomitant]
     Indication: CONSTIPATION
     Dosage: 2000 MG, UNKNOWN/D
     Route: 048
  7. LENDORMIN [Concomitant]
     Indication: INSOMNIA
     Dosage: 0.25 MG, UNKNOWN/D
     Route: 048
  8. PREDNISOLONE [Concomitant]
     Dosage: 35 MG, UNKNOWN/D
     Route: 048
     Dates: start: 20080704, end: 20080723
  9. PREDNISOLONE [Concomitant]
     Dosage: 20 MG, UNKNOWN/D
     Route: 048
     Dates: start: 20081127, end: 20090313
  10. ASPIRIN [Concomitant]
     Indication: PROPHYLAXIS
     Dosage: 100 MG, UNKNOWN/D
     Route: 048
  11. ALFAROL [Concomitant]
     Indication: PROPHYLAXIS
     Dosage: 0.25 UG, UNKNOWN/D
     Route: 048
  12. RISEDRONATE SODIUM [Concomitant]
     Indication: PROPHYLAXIS
     Dosage: 17.5 MG, WEEKLY
     Route: 048
  13. MEILAX [Concomitant]
     Indication: INSOMNIA
     Dosage: 1 MG, UNKNOWN/D
     Route: 048
  14. TACROLIMUS [Suspect]
     Dosage: 3 MG, UNKNOWN/D
     Route: 048
     Dates: start: 20080723, end: 20081125
  15. PREDNISOLONE [Concomitant]
     Dosage: 25 MG, UNKNOWN/D
     Route: 048
     Dates: start: 20080920, end: 20081126
  16. SULFAMETHOXAZOLE AND TRIMETHOPRIM [Concomitant]
     Indication: PROPHYLAXIS
     Dosage: 1 DF, UNKNOWN/D
     Route: 048
  17. PL GRAN. [Concomitant]
     Indication: NASOPHARYNGITIS
     Dosage: 1 G, TID
     Route: 048
  18. PREDNISOLONE [Concomitant]
     Indication: LUPUS NEPHRITIS
     Dosage: 40 MG, UNKNOWN/D
     Route: 048
     Dates: end: 20080703
  19. PREDNISOLONE [Concomitant]
     Dosage: 20 MG, UNKNOWN/D
     Route: 048
  20. LANSOPRAZOLE [Concomitant]
     Indication: PROPHYLAXIS
     Dosage: 30 MG, UNKNOWN/D
     Route: 048

REACTIONS (6)
  - SCHIZOPHRENIA [None]
  - HYPOAESTHESIA [None]
  - INTENTIONAL DRUG MISUSE [None]
  - ECZEMA [None]
  - PHARYNGITIS [None]
  - NASOPHARYNGITIS [None]
